FAERS Safety Report 5664663-5 (Version None)
Quarter: 2008Q1

REPORT INFORMATION
  Report Type: 
  Country: None (occurrence: None)
  Receive Date: 20080314
  Receipt Date: 20080305
  Transmission Date: 20080703
  Serious: Yes (Death)
  Sender: FDA-Public Use
  Company Number: AU-ROCHE-551108

PATIENT
  Age: 84 Year
  Sex: Female

DRUGS (2)
  1. CEFTRIAXONE SODIUM [Suspect]
     Indication: CELLULITIS
     Route: 042
     Dates: start: 20071214, end: 20071214
  2. CEFTRIAXONE SODIUM [Suspect]
     Route: 042

REACTIONS (1)
  - CARDIO-RESPIRATORY ARREST [None]
